FAERS Safety Report 9994813 (Version 1)
Quarter: 2014Q1

REPORT INFORMATION
  Report Type: Spontaneous
  Country: US (occurrence: None)
  Receive Date: 20140212
  Receipt Date: 20140212
  Transmission Date: 20141002
  Serious: Yes (Other)
  Sender: FDA-Public Use
  Company Number: 2013SCPR007767

PATIENT
  Age: 36 Year
  Sex: Female

DRUGS (1)
  1. CABERGOLINE [Suspect]
     Indication: PITUITARY TUMOUR
     Route: 048
     Dates: start: 20131103, end: 20131103

REACTIONS (4)
  - Heart rate increased [None]
  - Eye swelling [None]
  - Insomnia [None]
  - Fatigue [None]
